FAERS Safety Report 11121515 (Version 1)
Quarter: 2015Q2

REPORT INFORMATION
  Report Type: Spontaneous
  Country: US (occurrence: US)
  Receive Date: 20150519
  Receipt Date: 20150519
  Transmission Date: 20150821
  Serious: Yes (Other)
  Sender: FDA-Public Use
  Company Number: US-AMGEN-USASP2015046939

PATIENT
  Age: 59 Year
  Sex: Female

DRUGS (1)
  1. PROLIA [Suspect]
     Active Substance: DENOSUMAB
     Indication: PRODUCT USED FOR UNKNOWN INDICATION
     Dosage: UNK
     Route: 065

REACTIONS (13)
  - Hip fracture [Unknown]
  - Fall [Unknown]
  - Dry eye [Unknown]
  - Hypertension [Unknown]
  - Cataract [Recovered/Resolved]
  - Visual acuity reduced [Unknown]
  - Heart rate increased [Unknown]
  - Fatigue [Unknown]
  - Ocular hyperaemia [Unknown]
  - Rash pruritic [Unknown]
  - Amnesia [Unknown]
  - Poor peripheral circulation [Unknown]
  - Asthenia [Unknown]
